FAERS Safety Report 6449124-8 (Version None)
Quarter: 2009Q4

REPORT INFORMATION
  Report Type: 
  Country: None (occurrence: None)
  Receive Date: 20091120
  Receipt Date: 20091117
  Transmission Date: 20100525
  Serious: Yes (Other)
  Sender: FDA-Public Use
  Company Number: JP-BAYER-200912843BYL

PATIENT
  Age: 81 Year

DRUGS (24)
  1. NEXAVAR [Suspect]
     Indication: RENAL CELL CARCINOMA
     Dosage: TOTAL DAILY DOSE: 800 MG  UNIT DOSE: 200 MG
     Route: 048
     Dates: start: 20090706, end: 20090718
  2. NEXAVAR [Suspect]
     Dosage: UNIT DOSE: 200 MG
     Route: 048
     Dates: start: 20090814, end: 20090814
  3. FERROMIA [Concomitant]
     Dosage: TOTAL DAILY DOSE: 50 MG  UNIT DOSE: 50 MG
     Route: 048
     Dates: start: 20090617, end: 20090623
  4. FERROMIA [Concomitant]
     Dosage: TOTAL DAILY DOSE: 50 MG  UNIT DOSE: 50 MG
     Route: 048
     Dates: start: 20090629
  5. FLIVAS [Concomitant]
     Dosage: TOTAL DAILY DOSE: 50 MG  UNIT DOSE: 25 MG
     Route: 048
     Dates: start: 20090617, end: 20090623
  6. FLIVAS [Concomitant]
     Dosage: TOTAL DAILY DOSE: 50 MG  UNIT DOSE: 25 MG
     Route: 048
     Dates: start: 20090629
  7. KERATINAMIN [Concomitant]
     Route: 061
     Dates: start: 20090706, end: 20090718
  8. KERATINAMIN [Concomitant]
     Route: 061
     Dates: start: 20090817, end: 20090818
  9. GLUCOSE [Concomitant]
     Dosage: TOTAL DAILY DOSE: 40 ML  UNIT DOSE: 20 %
     Route: 065
     Dates: start: 20090718, end: 20090718
  10. GLUCOSE [Concomitant]
     Dosage: TOTAL DAILY DOSE: 40 ML  UNIT DOSE: 20 %
     Route: 065
     Dates: start: 20090721, end: 20090721
  11. GLUCOSE [Concomitant]
     Dosage: TOTAL DAILY DOSE: 40 ML  UNIT DOSE: 20 %
     Route: 065
     Dates: start: 20090724, end: 20090724
  12. VITAMEDIN [Concomitant]
     Dosage: TOTAL DAILY DOSE: 1 DF
     Route: 042
     Dates: start: 20090718, end: 20090718
  13. VITAMEDIN [Concomitant]
     Dosage: TOTAL DAILY DOSE: 1 DF
     Route: 042
     Dates: start: 20090724, end: 20090724
  14. VITAMEDIN [Concomitant]
     Dosage: TOTAL DAILY DOSE: 1 DF
     Route: 042
     Dates: start: 20090721, end: 20090721
  15. PRIMPERAN TAB [Concomitant]
     Dosage: TOTAL DAILY DOSE: 10 MG  UNIT DOSE: 10 MG
     Route: 065
     Dates: start: 20090718, end: 20090718
  16. PRIMPERAN TAB [Concomitant]
     Dosage: TOTAL DAILY DOSE: 10 MG  UNIT DOSE: 10 MG
     Route: 065
     Dates: start: 20090721, end: 20090721
  17. PRIMPERAN TAB [Concomitant]
     Dosage: TOTAL DAILY DOSE: 10 MG  UNIT DOSE: 10 MG
     Route: 065
     Dates: start: 20090724, end: 20090724
  18. LACTEC [Concomitant]
     Dosage: TOTAL DAILY DOSE: 1 ML  UNIT DOSE: 500 ML
     Route: 041
     Dates: start: 20090718, end: 20090718
  19. LACTEC [Concomitant]
     Dosage: TOTAL DAILY DOSE: 500 ML  UNIT DOSE: 500 ML
     Route: 041
     Dates: start: 20090724, end: 20090724
  20. LACTEC [Concomitant]
     Dosage: TOTAL DAILY DOSE: 500 ML  UNIT DOSE: 500 ML
     Route: 041
     Dates: start: 20090721, end: 20090721
  21. PREDNISOLONE [Concomitant]
     Dosage: TOTAL DAILY DOSE: 5 MG  UNIT DOSE: 5 MG
     Route: 048
     Dates: start: 20090724, end: 20090729
  22. PREDNISOLONE [Concomitant]
     Dosage: TOTAL DAILY DOSE: 10 MG  UNIT DOSE: 5 MG
     Route: 048
     Dates: start: 20090721, end: 20090724
  23. DIPHENHYDRAMINE HCL [Concomitant]
     Route: 061
     Dates: start: 20090817, end: 20090818
  24. DIPHENHYDRAMINE HCL [Concomitant]
     Route: 061
     Dates: start: 20090724, end: 20090806

REACTIONS (7)
  - BLOOD LACTATE DEHYDROGENASE INCREASED [None]
  - ERYTHEMA MULTIFORME [None]
  - FIBRIN D DIMER INCREASED [None]
  - FIBRIN DEGRADATION PRODUCTS INCREASED [None]
  - LIPASE INCREASED [None]
  - RASH [None]
  - STOMATITIS [None]
